FAERS Safety Report 19845346 (Version 1)
Quarter: 2021Q3

REPORT INFORMATION
  Report Type: Spontaneous
  Country: DE (occurrence: DE)
  Receive Date: 20210917
  Receipt Date: 20210917
  Transmission Date: 20211014
  Serious: Yes (Hospitalization)
  Sender: FDA-Public Use
  Company Number: DE-ACCORD-238758

PATIENT
  Age: 88 Year
  Sex: Female

DRUGS (10)
  1. SPIRONOLACTONE. [Suspect]
     Active Substance: SPIRONOLACTONE
     Indication: PRODUCT USED FOR UNKNOWN INDICATION
     Dosage: 50 MG
     Route: 048
  2. MIANSERIN [Concomitant]
     Active Substance: MIANSERIN
     Route: 048
  3. DORZOCOMP?VISION [Concomitant]
     Dosage: STRENGTH: 20 MG / ML + 5 MG / ML, 5/2, 1?0?1?0
     Route: 031
  4. LATANOPROST. [Concomitant]
     Active Substance: LATANOPROST
     Dosage: 0?0?0?1
     Route: 031
  5. CANDESARTAN. [Concomitant]
     Active Substance: CANDESARTAN
     Dosage: 8 MG
     Route: 048
  6. DULOXETINE 1A PHARMA [Concomitant]
     Dosage: 30 MG, 1?0?0?0
     Route: 048
  7. BISOPROLOL [Concomitant]
     Active Substance: BISOPROLOL
     Dosage: 5 MG, 1?0?0?0
     Route: 048
  8. MELPERONE/MELPERONE HYDROCHLORIDE [Concomitant]
     Active Substance: MELPERONE
     Dosage: 25MG / 5ML SOLUTION, AS NEEDED
     Route: 048
  9. ZOLPIDEM [Concomitant]
     Active Substance: ZOLPIDEM TARTRATE
     Dosage: 10 MG, 0?0?0?0.5
     Route: 048
  10. LEVOTHYROXINE. [Concomitant]
     Active Substance: LEVOTHYROXINE
     Dosage: 100 MCG, 0.75?0?0?0
     Route: 048

REACTIONS (4)
  - Abdominal pain [Unknown]
  - Psychomotor retardation [Unknown]
  - Product monitoring error [Unknown]
  - Nausea [Unknown]
